FAERS Safety Report 18919284 (Version 3)
Quarter: 2021Q4

REPORT INFORMATION
  Report Type: Spontaneous
  Country: US (occurrence: US)
  Receive Date: 20210220
  Receipt Date: 20211005
  Transmission Date: 20220303
  Serious: Yes (Hospitalization, Other)
  Sender: FDA-Public Use
  Company Number: US-TORRENT-00010731

PATIENT
  Age: 70 Year
  Sex: Male

DRUGS (3)
  1. OLANZAPINE [Suspect]
     Active Substance: OLANZAPINE
     Indication: Psychotic disorder
     Dosage: 10MG
     Dates: start: 2005
  2. CLONAZEPAM [Concomitant]
     Active Substance: CLONAZEPAM
     Indication: Mood swings
     Dosage: 0.5MG
     Dates: start: 2005
  3. DULOXETINE [Concomitant]
     Active Substance: DULOXETINE
     Indication: Psychotic disorder
     Dosage: 60MG
     Dates: start: 2005

REACTIONS (3)
  - Dysphagia [Unknown]
  - Condition aggravated [Unknown]
  - Parkinsonism [Unknown]
